FAERS Safety Report 22001032 (Version 2)
Quarter: 2023Q1

REPORT INFORMATION
  Report Type: Spontaneous
  Country: GR (occurrence: GR)
  Receive Date: 20230216
  Receipt Date: 20230222
  Transmission Date: 20230418
  Serious: Yes (Hospitalization)
  Sender: FDA-Public Use
  Company Number: GR-BAYER-2023A014526

PATIENT
  Age: 41 Year
  Sex: Male

DRUGS (2)
  1. CIPROFLOXACIN [Suspect]
     Active Substance: CIPROFLOXACIN
     Indication: Prostatitis
     Dosage: 500 MG
     Dates: start: 20221119, end: 20221125
  2. CIPROFLOXACIN [Suspect]
     Active Substance: CIPROFLOXACIN
     Indication: Prostatitis
     Dosage: UNK
     Dates: start: 20221231

REACTIONS (13)
  - Muscle injury [None]
  - Muscle atrophy [None]
  - Skin laxity [None]
  - Myoglobin urine [None]
  - Myalgia [Recovered/Resolved]
  - Depression [None]
  - Dark circles under eyes [Recovered/Resolved]
  - Off label use [None]
  - Dermatochalasis [None]
  - Dyspnoea [Recovered/Resolved]
  - Hypertension [Recovered/Resolved]
  - Tachycardia [Recovered/Resolved]
  - Tinnitus [None]

NARRATIVE: CASE EVENT DATE: 20221119
